FAERS Safety Report 11609739 (Version 1)
Quarter: 2015Q4

REPORT INFORMATION
  Report Type: Report from Study
  Country: NL (occurrence: NL)
  Receive Date: 20151007
  Receipt Date: 20151007
  Transmission Date: 20160304
  Serious: Yes (Death)
  Sender: FDA-Public Use
  Company Number: PHHY2015NL121292

PATIENT
  Age: 70 Year
  Sex: Female

DRUGS (3)
  1. ACLASTA [Suspect]
     Active Substance: ZOLEDRONIC ACID
     Indication: OSTEOPOROSIS
     Dosage: 5 MG, ONCE IN EVERY 52 WEEKS
     Route: 042
     Dates: start: 20110606
  2. ACLASTA [Suspect]
     Active Substance: ZOLEDRONIC ACID
     Dosage: 5 MG, ONCE IN EVERY 52 WEEKS
     Route: 042
     Dates: start: 20130604
  3. ACLASTA [Suspect]
     Active Substance: ZOLEDRONIC ACID
     Dosage: 5 MG, ONCE IN EVERY 52 WEEKS
     Route: 042
     Dates: start: 20120601

REACTIONS (1)
  - Death [Fatal]

NARRATIVE: CASE EVENT DATE: 201506
